FAERS Safety Report 12341067 (Version 1)
Quarter: 2016Q2

REPORT INFORMATION
  Report Type: Spontaneous
  Country: US (occurrence: US)
  Receive Date: 20160506
  Receipt Date: 20160506
  Transmission Date: 20160815
  Serious: No
  Sender: FDA-Public Use
  Company Number: US-BAUSCH-BL-2015-010547

PATIENT
  Age: 34 Year
  Sex: Male

DRUGS (2)
  1. LISINOPRIL. [Concomitant]
     Active Substance: LISINOPRIL
     Indication: PRODUCT USED FOR UNKNOWN INDICATION
     Dates: start: 201206
  2. OFLOXACIN OTIC [Suspect]
     Active Substance: OFLOXACIN
     Indication: EYE INFECTION BACTERIAL
     Route: 047
     Dates: start: 20150316, end: 20150317

REACTIONS (3)
  - Wrong drug administered [Unknown]
  - Eye irritation [Recovered/Resolved]
  - Product outer packaging issue [Unknown]

NARRATIVE: CASE EVENT DATE: 20150316
